FAERS Safety Report 13904463 (Version 1)
Quarter: 2017Q3

REPORT INFORMATION
  Report Type: Spontaneous
  Country: US (occurrence: None)
  Receive Date: 20170824
  Receipt Date: 20170824
  Transmission Date: 20171127
  Serious: No
  Sender: FDA-Public Use
  Company Number: None

PATIENT
  Age: 5 Month
  Sex: Male

DRUGS (1)
  1. H.P. ACTHAR [Suspect]
     Active Substance: CORTICOTROPIN
     Dosage: ACTHAR HP GEL IM 0.4M BID SQ
     Route: 058

REACTIONS (2)
  - Epilepsy [None]
  - Muscle spasms [None]

NARRATIVE: CASE EVENT DATE: 20170820
